FAERS Safety Report 24282424 (Version 5)
Quarter: 2025Q2

REPORT INFORMATION
  Report Type: Report from Study
  Country: MX (occurrence: MX)
  Receive Date: 20240904
  Receipt Date: 20250609
  Transmission Date: 20250716
  Serious: Yes (Other)
  Sender: NOVARTIS
  Company Number: MX-002147023-NVSC2024MX137382

PATIENT
  Age: 60 Year
  Sex: Female
  Weight: 44 kg

DRUGS (17)
  1. COSENTYX [Suspect]
     Active Substance: SECUKINUMAB
     Indication: Ankylosing spondylitis
     Route: 058
     Dates: start: 20240503
  2. COSENTYX [Suspect]
     Active Substance: SECUKINUMAB
     Dosage: 1 DOSAGE FORM (150 MG), QW (EVERY WEEK BY 5 WEEKS)
     Route: 058
     Dates: start: 20240506, end: 20240703
  3. COSENTYX [Suspect]
     Active Substance: SECUKINUMAB
     Dosage: 1 DOSAGE FORM (150 MG), QMO
     Route: 058
     Dates: start: 20240703, end: 20240703
  4. COSENTYX [Suspect]
     Active Substance: SECUKINUMAB
     Dosage: 2 DOSAGE FORM (150 MG), QMO
     Route: 058
     Dates: start: 20240703, end: 202504
  5. COSENTYX [Suspect]
     Active Substance: SECUKINUMAB
     Dosage: 1 DOSAGE FORM (150 MG), QW
     Route: 058
  6. COSENTYX [Suspect]
     Active Substance: SECUKINUMAB
     Dosage: 2 DOSAGE FORM, QMO (EVERY 4 WEEKS)
     Route: 058
     Dates: start: 202407, end: 202501
  7. COSENTYX [Suspect]
     Active Substance: SECUKINUMAB
     Dosage: 2 DOSAGE FORM (300 MG), QMO
     Route: 058
     Dates: start: 20240803, end: 20250406
  8. COSENTYX [Suspect]
     Active Substance: SECUKINUMAB
     Route: 058
     Dates: start: 202501
  9. COSENTYX [Suspect]
     Active Substance: SECUKINUMAB
     Dosage: 1 DOSAGE FORM (150 MG), QW
     Route: 065
     Dates: start: 202504
  10. COSENTYX [Suspect]
     Active Substance: SECUKINUMAB
     Dosage: 1 DOSAGE FORM (150 MG), QMO
     Route: 058
     Dates: start: 20250506
  11. ALENDRONATE [Concomitant]
     Active Substance: ALENDRONATE SODIUM
     Indication: Osteoporosis
     Dosage: 750 MG, QW (TREATMENT STARTED APPROXIMATELY 1 YEAR AGO)
     Route: 048
  12. ALENDRONATE [Concomitant]
     Active Substance: ALENDRONATE SODIUM
     Dosage: 1 DOSAGE FORM (700 MG/ 5600 IU), QW
     Route: 048
     Dates: start: 202211, end: 202503
  13. Cuyulid [Concomitant]
     Indication: Osteoporosis
     Dosage: 1 DOSAGE FORM, (70 MG) TABLET
     Route: 048
     Dates: start: 2022
  14. FOSAMAX [Concomitant]
     Active Substance: ALENDRONATE SODIUM
     Indication: Osteoporosis
     Dosage: 1 DOSAGE FORM (70MG/5600 IU), QW, TABLET
     Route: 048
     Dates: start: 202210
  15. FOSAMAX [Concomitant]
     Active Substance: ALENDRONATE SODIUM
     Indication: Osteopenia
  16. Zolnic [Concomitant]
     Indication: Osteoporosis
     Dosage: 1 DOSAGE FORM (4 MG/ 5 ML), Q12MO
     Route: 042
     Dates: start: 202503
  17. CHOLECALCIFEROL [Concomitant]
     Active Substance: CHOLECALCIFEROL
     Indication: Osteoporosis
     Dosage: 1 DOSAGE FORM (700 MG/ 5600 IU), QW
     Route: 048
     Dates: start: 202211, end: 202503

REACTIONS (46)
  - Arrhythmia [Recovered/Resolved]
  - Arrhythmia [Recovering/Resolving]
  - Colitis [Unknown]
  - Pain [Recovered/Resolved]
  - Swelling [Recovered/Resolved]
  - Hypotension [Recovered/Resolved]
  - Rash [Not Recovered/Not Resolved]
  - Nausea [Recovered/Resolved]
  - Diarrhoea [Unknown]
  - Abdominal discomfort [Not Recovered/Not Resolved]
  - Dizziness [Recovered/Resolved]
  - Reduced facial expression [Recovering/Resolving]
  - Muscle rigidity [Recovered/Resolved]
  - Musculoskeletal discomfort [Recovering/Resolving]
  - Asthenia [Not Recovered/Not Resolved]
  - Drug ineffective [Recovering/Resolving]
  - Hypoaesthesia [Recovered/Resolved]
  - Peripheral swelling [Recovered/Resolved]
  - Weight decreased [Unknown]
  - Chest discomfort [Recovered/Resolved]
  - Gastrooesophageal reflux disease [Recovered/Resolved]
  - Burning sensation [Unknown]
  - Pruritus [Unknown]
  - Tinnitus [Not Recovered/Not Resolved]
  - Constipation [Recovered/Resolved]
  - Gastrointestinal pain [Recovered/Resolved]
  - Dyspnoea [Recovering/Resolving]
  - Chest discomfort [Recovering/Resolving]
  - Dry mouth [Recovering/Resolving]
  - Dry eye [Recovering/Resolving]
  - Inflammation [Recovered/Resolved]
  - Bone density decreased [Unknown]
  - Joint stiffness [Unknown]
  - Arthralgia [Recovered/Resolved]
  - Gastrointestinal inflammation [Recovered/Resolved]
  - Constipation [Recovered/Resolved]
  - Pain in extremity [Recovering/Resolving]
  - Blood pressure fluctuation [Recovering/Resolving]
  - Night sweats [Recovering/Resolving]
  - Muscle rigidity [Recovered/Resolved]
  - Night sweats [Recovered/Resolved]
  - Pain in extremity [Recovered/Resolved]
  - Gastrooesophageal reflux disease [Recovering/Resolving]
  - Gastrointestinal inflammation [Recovering/Resolving]
  - Gastrointestinal pain [Recovering/Resolving]
  - Constipation [Recovering/Resolving]

NARRATIVE: CASE EVENT DATE: 20240501
